FAERS Safety Report 9834246 (Version 3)
Quarter: 2014Q1

REPORT INFORMATION
  Report Type: Report from Study
  Country: CN (occurrence: CN)
  Receive Date: 20140122
  Receipt Date: 20140127
  Transmission Date: 20141002
  Serious: Yes (Death, Life-Threatening, Hospitalization)
  Sender: FDA-Public Use
  Company Number: CN-CELGENEUS-035-CCAZA-14010197

PATIENT
  Age: 65 Year
  Sex: Male
  Weight: 50.5 kg

DRUGS (4)
  1. AZACITIDINE INJECTABLE [Suspect]
     Indication: MYELODYSPLASTIC SYNDROME
     Dosage: 75 MILLIGRAM/SQ. METER
     Route: 058
     Dates: start: 20121016, end: 20121022
  2. AZACITIDINE INJECTABLE [Suspect]
     Dosage: 75 MILLIGRAM/SQ. METER
     Route: 058
     Dates: start: 20131205, end: 20131211
  3. AZACITIDINE INJECTABLE [Suspect]
     Route: 058
     Dates: end: 20140109
  4. AZACITIDINE INJECTABLE [Suspect]
     Route: 058
     Dates: end: 20140117

REACTIONS (3)
  - Cardiac failure [Fatal]
  - Hydrothorax [Not Recovered/Not Resolved]
  - Abdominal pain upper [Recovered/Resolved]
